FAERS Safety Report 5047863-7 (Version None)
Quarter: 2006Q3

REPORT INFORMATION
  Report Type: 
  Country: None (occurrence: None)
  Receive Date: 20060703
  Receipt Date: 20060619
  Transmission Date: 20061208
  Serious: Yes (Death, Hospitalization)
  Sender: FDA-Public Use
  Company Number: US-2006-010290

PATIENT
  Age: 66 Year
  Sex: Female

DRUGS (6)
  1. BETASERON [Suspect]
     Indication: MULTIPLE SCLEROSIS
     Dosage: SUBCUTANEOUS
     Route: 058
     Dates: start: 19950316, end: 20040101
  2. REBIF [Concomitant]
  3. TRAZODONE HCL [Concomitant]
  4. PREMARIN [Concomitant]
  5. BACLOFEN [Concomitant]
  6. DITROPAN XL [Concomitant]

REACTIONS (3)
  - DEPRESSED LEVEL OF CONSCIOUSNESS [None]
  - PNEUMONIA [None]
  - POST PROCEDURAL COMPLICATION [None]
